FAERS Safety Report 6844630-6 (Version None)
Quarter: 2010Q3

REPORT INFORMATION
  Report Type: 
  Country: None (occurrence: None)
  Receive Date: 20100715
  Receipt Date: 20100709
  Transmission Date: 20110219
  Serious: Yes (Hospitalization, Disabling)
  Sender: FDA-Public Use
  Company Number: US-MERCK-1007USA01076

PATIENT
  Sex: Female

DRUGS (2)
  1. FOSAMAX [Suspect]
     Indication: BONE DENSITY INCREASED
     Route: 048
     Dates: start: 20000101
  2. PAXIL [Concomitant]
     Route: 065

REACTIONS (5)
  - ABASIA [None]
  - FALL [None]
  - LOWER LIMB FRACTURE [None]
  - PAIN [None]
  - PAIN IN EXTREMITY [None]
